FAERS Safety Report 20456144 (Version 1)
Quarter: 2022Q1

REPORT INFORMATION
  Report Type: Spontaneous
  Country: IL (occurrence: IL)
  Receive Date: 20220210
  Receipt Date: 20220210
  Transmission Date: 20220423
  Serious: Yes (Other)
  Sender: FDA-Public Use
  Company Number: IL-JUBILANT CADISTA PHARMACEUTICALS-2022JUB00020

PATIENT
  Age: 56 Year
  Sex: Male

DRUGS (1)
  1. PREDNISONE [Suspect]
     Active Substance: PREDNISONE
     Indication: Dysphonia
     Dosage: 60 MG, ONCE
     Route: 065

REACTIONS (1)
  - Hiccups [Recovered/Resolved]
